FAERS Safety Report 15693232 (Version 4)
Quarter: 2019Q1

REPORT INFORMATION
  Report Type: Report from Study
  Country: JP (occurrence: JP)
  Receive Date: 20181206
  Receipt Date: 20190221
  Transmission Date: 20190417
  Serious: Yes (Hospitalization, Other)
  Sender: FDA-Public Use
  Company Number: JP-CONCORDIA PHARMACEUTICALS INC.-GSH201812-004071

PATIENT
  Age: 26 Year
  Sex: Female
  Weight: 58.8 kg

DRUGS (4)
  1. LANSOPRAZOLE. [Concomitant]
     Active Substance: LANSOPRAZOLE
     Indication: INVESTIGATION
  2. PLAQUENIL [Suspect]
     Active Substance: HYDROXYCHLOROQUINE SULFATE
     Indication: SYSTEMIC LUPUS ERYTHEMATOSUS
     Dosage: 200 MG/DAY AND 400 M/DAY ON ALTERNATE DAYS
     Route: 048
     Dates: start: 20171209
  3. PLAQUENIL [Suspect]
     Active Substance: HYDROXYCHLOROQUINE SULFATE
     Dosage: 200 MG/DAY AND 400 M/DAY ON ALTERNATE DAYS
     Route: 048
     Dates: start: 20171209
  4. LANSOPRAZOLE. [Concomitant]
     Active Substance: LANSOPRAZOLE
     Indication: PROPHYLAXIS
     Dates: start: 20171208

REACTIONS (1)
  - Retinal detachment [Recovering/Resolving]

NARRATIVE: CASE EVENT DATE: 20180302
